FAERS Safety Report 8840358 (Version 1)
Quarter: 2012Q4

REPORT INFORMATION
  Report Type: 
  Country: US (occurrence: US)
  Receive Date: 20121015
  Receipt Date: 20121015
  Transmission Date: 20130627
  Serious: Yes (Other)
  Sender: FDA-Public Use
  Company Number: US-ROCHE-1140840

PATIENT
  Sex: Female

DRUGS (2)
  1. NUTROPIN [Suspect]
     Indication: TURNER^S SYNDROME
     Route: 065
     Dates: start: 19980624
  2. PREDNISONE [Concomitant]

REACTIONS (5)
  - Tonsillitis [Unknown]
  - Productive cough [Unknown]
  - Pyrexia [Unknown]
  - Nasal congestion [Unknown]
  - Erythema [Unknown]
